FAERS Safety Report 6657861-5 (Version None)
Quarter: 2010Q1

REPORT INFORMATION
  Report Type: 
  Country: None (occurrence: None)
  Receive Date: 20100326
  Receipt Date: 20100317
  Transmission Date: 20100710
  Serious: Yes (Hospitalization)
  Sender: FDA-Public Use
  Company Number: UTC-000947

PATIENT
  Age: 74 Year
  Sex: Male

DRUGS (1)
  1. TYVASO [Suspect]
     Dosage: INHALATION
     Route: 055
     Dates: start: 20100201, end: 20100316

REACTIONS (1)
  - ASTHMA [None]
